FAERS Safety Report 24406321 (Version 1)
Quarter: 2024Q4

REPORT INFORMATION
  Report Type: Spontaneous
  Country: US (occurrence: US)
  Receive Date: 20241007
  Receipt Date: 20241007
  Transmission Date: 20250114
  Serious: Yes (Other)
  Sender: CSL BEHRING
  Company Number: US-BEH-2024180915

PATIENT
  Sex: Male

DRUGS (2)
  1. HUMATE-P [Suspect]
     Active Substance: HUMAN COAGULATION FACTOR VIII/VON WILLEBRAND FACTOR COMPLEX
     Indication: Von Willebrand^s disease
     Dosage: INFUSE 3500 RCOF UNITS (3150-3850) SLOW IV PUSH AS NEEDED FOR BLEEDING, (STRENGTH GIVEN AS 1200)
     Route: 042
     Dates: start: 202303
  2. HUMATE-P [Suspect]
     Active Substance: HUMAN COAGULATION FACTOR VIII/VON WILLEBRAND FACTOR COMPLEX
     Dosage: INFUSE 3500 RCOF UNITS (3150-3850) SLOW IV PUSH AS NEEDED FOR BLEEDING, (STRENGTH GIVEN AS 2400)
     Route: 042
     Dates: start: 202303

REACTIONS (1)
  - Nail bed bleeding [Recovered/Resolved]
